FAERS Safety Report 9541931 (Version 1)
Quarter: 2013Q3

REPORT INFORMATION
  Report Type: Spontaneous
  Country: CN (occurrence: CN)
  Receive Date: 20130923
  Receipt Date: 20130923
  Transmission Date: 20140515
  Serious: Yes (Hospitalization, Other)
  Sender: FDA-Public Use
  Company Number: PHHY2013CN103815

PATIENT
  Age: 71 Year
  Sex: Male

DRUGS (7)
  1. OXCARBAZEPINE [Suspect]
     Indication: TIC
     Dosage: 0.3 G, BID
     Route: 045
     Dates: start: 20120915, end: 20120924
  2. VALPROIC ACID [Suspect]
     Indication: TIC
     Dosage: 1200 MG, QD
     Dates: start: 20120914, end: 20120919
  3. PHENOBARBITAL [Suspect]
     Indication: TIC
     Dosage: 0.1 MG, QD
     Route: 030
     Dates: start: 20120914, end: 20120917
  4. PIPERACILLIN W/SULBACTAM [Concomitant]
     Dosage: 5 G, Q8H
     Route: 042
  5. HAEMOCOAGULASE [Concomitant]
     Dosage: UNK UKN, UNK
  6. NIFEDIPINE [Concomitant]
     Dosage: UNK UKN, UNK
  7. FUROSEMIDE [Concomitant]
     Dosage: UNK UKN, UNK

REACTIONS (6)
  - Infection [Not Recovered/Not Resolved]
  - Bone marrow failure [Recovering/Resolving]
  - Red blood cell count decreased [Recovering/Resolving]
  - Platelet count decreased [Recovering/Resolving]
  - White blood cell count decreased [Recovering/Resolving]
  - Reticulocyte count decreased [Recovering/Resolving]
